FAERS Safety Report 5514096-7 (Version None)
Quarter: 2007Q4

REPORT INFORMATION
  Report Type: 
  Country: None (occurrence: None)
  Receive Date: 20071113
  Receipt Date: 20071102
  Transmission Date: 20080405
  Serious: Yes (Hospitalization)
  Sender: FDA-Public Use
  Company Number: US-JNJFOC-20071101283

PATIENT
  Sex: Female
  Weight: 63.05 kg

DRUGS (12)
  1. FENTANYL TRANSDERMAL SYSTEM [Suspect]
     Route: 062
  2. FENTANYL TRANSDERMAL SYSTEM [Suspect]
     Route: 062
  3. FENTANYL TRANSDERMAL SYSTEM [Suspect]
     Indication: BACK PAIN
     Route: 062
  4. HUMULIN R [Concomitant]
     Indication: DIABETES MELLITUS
     Route: 058
  5. HUMALOG [Concomitant]
     Indication: DIABETES MELLITUS
     Route: 058
  6. AMITRIPTYLINE HCL [Concomitant]
     Indication: NEUROPATHY PERIPHERAL
     Route: 048
  7. INDOMETHACIN [Concomitant]
     Indication: NEUROPATHY
     Route: 048
  8. SINUTAB [Concomitant]
     Indication: SINUS DISORDER
     Route: 065
  9. LIPITOR [Concomitant]
     Indication: BLOOD CHOLESTEROL
     Route: 048
  10. PEPCID [Concomitant]
     Indication: GASTROOESOPHAGEAL REFLUX DISEASE
     Route: 048
  11. ENALAPRIL MALEATE [Concomitant]
     Indication: BLOOD PRESSURE
     Route: 048
  12. COREG [Concomitant]
     Indication: BLOOD PRESSURE
     Route: 048

REACTIONS (5)
  - CATARACT [None]
  - DRUG HYPERSENSITIVITY [None]
  - PAIN [None]
  - PHARMACEUTICAL PRODUCT COMPLAINT [None]
  - RENAL FAILURE CHRONIC [None]
